FAERS Safety Report 7740111-6 (Version None)
Quarter: 2011Q3

REPORT INFORMATION
  Report Type: 
  Country: None (occurrence: None)
  Receive Date: 20110909
  Receipt Date: 20110413
  Transmission Date: 20111222
  Serious: No
  Sender: FDA-Public Use
  Company Number: US-BAYER-2011-033097

PATIENT
  Sex: Female

DRUGS (2)
  1. ACETYLSALICYLIC ACID SRT [Concomitant]
  2. MIRENA [Suspect]
     Indication: CONTRACEPTION
     Dosage: 20 MCG/24HR, CONT
     Dates: start: 20110125

REACTIONS (2)
  - DIARRHOEA [None]
  - SUPPRESSED LACTATION [None]
